FAERS Safety Report 6499178-8 (Version None)
Quarter: 2009Q4

REPORT INFORMATION
  Report Type: 
  Country: None (occurrence: None)
  Receive Date: 20091215
  Receipt Date: 20091205
  Transmission Date: 20100525
  Serious: No
  Sender: FDA-Public Use
  Company Number: US-B.I. PHARMACEUTICALS,INC./RIDGEFIELD-2009-BP-14108BP

PATIENT
  Sex: Female

DRUGS (4)
  1. ZANTAC 150 [Suspect]
     Indication: MULTIPLE ALLERGIES
     Dosage: 300 MG
     Route: 048
     Dates: start: 20090601
  2. ZANTAC 150 [Suspect]
     Indication: URTICARIA
  3. EFFEXOR [Concomitant]
     Indication: MIGRAINE
     Route: 048
     Dates: start: 19890101
  4. CELEBREX [Concomitant]
     Indication: POLYARTHRITIS
     Dates: start: 20090501

REACTIONS (1)
  - DRUG SCREEN POSITIVE [None]
